FAERS Safety Report 8581313-9 (Version None)
Quarter: 2012Q3

REPORT INFORMATION
  Report Type: 
  Country: None (occurrence: None)
  Receive Date: 20120809
  Receipt Date: 20120807
  Transmission Date: 20120928
  Serious: Yes (Hospitalization)
  Sender: FDA-Public Use
  Company Number: PHHO2010JP02740

PATIENT
  Sex: Male
  Weight: 66 kg

DRUGS (28)
  1. MUCOSTA [Concomitant]
     Dosage: UNK
     Dates: start: 20100120
  2. HALOPERIDOL [Concomitant]
     Dosage: UNK
     Dates: start: 20100622
  3. SELBEX [Concomitant]
     Indication: GASTRITIS PROPHYLAXIS
  4. VITANEURIN [Concomitant]
     Indication: ASTHENOPIA
  5. ADENOSINE [Concomitant]
     Indication: ASTHENOPIA
  6. BASEN [Concomitant]
     Indication: DIABETES MELLITUS
  7. CABERGOLINE [Concomitant]
     Dosage: UNK
     Dates: start: 20090627
  8. RAD001 [Suspect]
     Dosage: 10 MG, QD
     Route: 048
     Dates: start: 20101006, end: 20110515
  9. ROCALTROL [Concomitant]
  10. CINAL [Concomitant]
     Indication: ASTHENOPIA
  11. NOVORAPID [Concomitant]
     Indication: DIABETES MELLITUS
  12. LOXOPROFEN [Concomitant]
     Indication: PAIN
  13. PLACEBO [Suspect]
     Indication: PANCREATIC NEUROENDOCRINE TUMOUR
     Dosage: PLACEBO
     Route: 048
     Dates: start: 20090402, end: 20091217
  14. PANCREAZE [Concomitant]
  15. AMITRIPTYLINE HCL [Concomitant]
     Indication: HEADACHE
  16. RAD001 [Suspect]
     Dosage: UNK
     Route: 048
     Dates: start: 20110530
  17. ZOMETA [Concomitant]
     Indication: METASTASES TO BONE
     Dosage: UNK
     Dates: start: 20090407
  18. OPSO DAINIPPON [Concomitant]
  19. RAD001 [Suspect]
     Indication: PANCREATIC NEUROENDOCRINE TUMOUR
     Dosage: 10 MG, QD
     Route: 048
     Dates: start: 20091218, end: 20100929
  20. SANDOSTATIN LAR [Concomitant]
     Indication: PANCREATIC NEUROENDOCRINE TUMOUR
     Dosage: UNK
     Dates: start: 20080823
  21. PANCREATIN TRIPLE STRENGTH CAP [Concomitant]
  22. ZOLPIDEM [Concomitant]
  23. PENTAZOCINE LACTATE [Concomitant]
  24. FENTANYL CITRATE [Concomitant]
  25. ALDACTONE [Concomitant]
  26. TESTOSTERONE ENANTHATE [Concomitant]
  27. VITAMIN B12 [Concomitant]
     Indication: ASTHENOPIA
  28. KETOPROFEN [Concomitant]
     Indication: PAIN

REACTIONS (7)
  - MUSCULOSKELETAL PAIN [None]
  - METASTASES TO LYMPH NODES [None]
  - SPINAL FRACTURE [None]
  - ABDOMINAL PAIN [None]
  - DEHYDRATION [None]
  - VOMITING [None]
  - METASTASES TO BONE [None]
